FAERS Safety Report 16058491 (Version 1)
Quarter: 2019Q1

REPORT INFORMATION
  Report Type: Spontaneous
  Country: FR (occurrence: FR)
  Receive Date: 20190311
  Receipt Date: 20190311
  Transmission Date: 20190418
  Serious: Yes (Death, Other)
  Sender: FDA-Public Use
  Company Number: FR-JNJFOC-20190141192

PATIENT
  Sex: Male

DRUGS (9)
  1. FORTZAAR [Concomitant]
     Active Substance: HYDROCHLOROTHIAZIDE\LOSARTAN POTASSIUM
     Route: 065
  2. XARELTO [Suspect]
     Active Substance: RIVAROXABAN
     Indication: ARRHYTHMIA
     Route: 048
  3. DOLIPRANE [Concomitant]
     Active Substance: ACETAMINOPHEN
     Route: 065
  4. TEMERIT [Concomitant]
     Active Substance: NEBIVOLOL
     Route: 065
  5. NASONEX [Concomitant]
     Active Substance: MOMETASONE FUROATE
     Route: 065
  6. XARELTO [Suspect]
     Active Substance: RIVAROXABAN
     Indication: ARRHYTHMIA
     Route: 048
     Dates: start: 201212
  7. XYZALL [Concomitant]
     Active Substance: LEVOCETIRIZINE DIHYDROCHLORIDE
     Route: 065
  8. CARBOMER [Concomitant]
     Active Substance: CARBOMER
     Route: 065
  9. CROMOGLICATE SODIUM [Concomitant]
     Active Substance: CROMOLYN SODIUM
     Route: 065

REACTIONS (7)
  - Dizziness [Unknown]
  - Cerebellar haemorrhage [Fatal]
  - Haemorrhage [Fatal]
  - Brain death [Fatal]
  - Malaise [Unknown]
  - Cerebral haemorrhage [Fatal]
  - Meningorrhagia [Fatal]

NARRATIVE: CASE EVENT DATE: 201809
